FAERS Safety Report 7459402-1 (Version None)
Quarter: 2011Q2

REPORT INFORMATION
  Report Type: 
  Country: None (occurrence: None)
  Receive Date: 20110505
  Receipt Date: 20110420
  Transmission Date: 20111010
  Serious: Yes (Life-Threatening, Hospitalization)
  Sender: FDA-Public Use
  Company Number: US-JNJFOC-20110402878

PATIENT
  Sex: Female
  Weight: 114.6 kg

DRUGS (11)
  1. EXCEDRIN (MIGRAINE) [Concomitant]
  2. INFLIXIMAB, RECOMBINANT [Suspect]
     Route: 042
  3. SERTRALINE [Concomitant]
     Route: 048
  4. INFLIXIMAB, RECOMBINANT [Suspect]
     Indication: PSORIASIS
     Route: 042
  5. FLEXERIL [Suspect]
     Indication: PRODUCT USED FOR UNKNOWN INDICATION
  6. LAMOTRIGINE [Concomitant]
     Route: 048
  7. VICODIN [Concomitant]
     Route: 048
  8. SEROQUEL [Concomitant]
     Route: 048
  9. MARIJUANA [Concomitant]
     Dosage: 1-7 TIMES A WEEK
  10. CLONAZEPAM [Concomitant]
     Dosage: 0.5 MG BID; CAN TAKE UP TO 4 DOSES PER DAY AS NEEDED
  11. TOPAMAX [Suspect]
     Indication: PRODUCT USED FOR UNKNOWN INDICATION
     Route: 048

REACTIONS (5)
  - MULTIPLE DRUG OVERDOSE INTENTIONAL [None]
  - PYELONEPHRITIS [None]
  - BIPOLAR DISORDER [None]
  - ESCHERICHIA INFECTION [None]
  - SUICIDE ATTEMPT [None]
